FAERS Safety Report 5883234-9 (Version None)
Quarter: 2008Q3

REPORT INFORMATION
  Report Type: 
  Country: None (occurrence: None)
  Receive Date: 20080910
  Receipt Date: 20080828
  Transmission Date: 20090109
  Serious: Yes (Hospitalization, Other)
  Sender: FDA-Public Use
  Company Number: 2008SP017808

PATIENT
  Age: 63 Year
  Sex: Male

DRUGS (6)
  1. RIBAVIRIN (S-P) (RIBAVIRRIN) [Suspect]
     Indication: HEPATITIS C
     Dosage: 600 MG;QD;
     Dates: start: 20050701
  2. PEGASYS [Suspect]
     Indication: HEPATITIS C
     Dosage: 180 MCG;QW;
     Dates: start: 20050701
  3. STEROID [Concomitant]
  4. TACROLIMUS [Concomitant]
  5. VALGANCICLOVIR HCL [Concomitant]
  6. LAMIVUDINE [Concomitant]

REACTIONS (11)
  - ANAEMIA [None]
  - ASTHENIA [None]
  - BONE MARROW FAILURE [None]
  - BRONCHIECTASIS [None]
  - CHILLS [None]
  - CYTOMEGALOVIRUS ANTIGEN POSITIVE [None]
  - HAEMOLYSIS [None]
  - ORGANISING PNEUMONIA [None]
  - PLEURAL EFFUSION [None]
  - PYREXIA [None]
  - TRANSAMINASES INCREASED [None]
